FAERS Safety Report 7047397-4 (Version None)
Quarter: 2010Q4

REPORT INFORMATION
  Report Type: 
  Country: None (occurrence: None)
  Receive Date: 20101015
  Receipt Date: 20101011
  Transmission Date: 20110411
  Serious: Yes (Death)
  Sender: FDA-Public Use
  Company Number: IT-CELGENEUS-083-21880-10100985

PATIENT
  Sex: Female
  Weight: 50 kg

DRUGS (2)
  1. REVLIMID [Suspect]
     Indication: MULTIPLE MYELOMA
     Route: 048
     Dates: start: 20100306
  2. REVLIMID [Suspect]
     Route: 048
     Dates: start: 20100728, end: 20100825

REACTIONS (1)
  - DEATH [None]
